FAERS Safety Report 4368661-3 (Version None)
Quarter: 2004Q2

REPORT INFORMATION
  Report Type: 
  Country: None (occurrence: None)
  Receive Date: 20040602
  Receipt Date: 20040513
  Transmission Date: 20050107
  Serious: Yes (Other)
  Sender: FDA-Public Use
  Company Number: GB-AMGEN-US077284

PATIENT
  Sex: Male

DRUGS (1)
  1. ENBREL [Suspect]
     Dosage: SC
     Route: 058
     Dates: start: 20031201

REACTIONS (3)
  - CONDITION AGGRAVATED [None]
  - SKIN LESION [None]
  - SQUAMOUS CELL CARCINOMA [None]
